FAERS Safety Report 15469723 (Version 5)
Quarter: 2018Q4

REPORT INFORMATION
  Report Type: Spontaneous
  Country: US (occurrence: US)
  Receive Date: 20181005
  Receipt Date: 20181019
  Transmission Date: 20190205
  Serious: Yes (Other)
  Sender: FDA-Public Use
  Company Number: US-SA-2018SA270855

PATIENT
  Sex: Female

DRUGS (1)
  1. ICY HOT MEDICATED NO MESS APPLICATOR [Suspect]
     Active Substance: MENTHOL

REACTIONS (6)
  - Sleep disorder [Unknown]
  - Blister [Unknown]
  - Application site pain [Unknown]
  - Application site discomfort [Unknown]
  - Neck pain [Unknown]
  - Burns second degree [Unknown]
